FAERS Safety Report 12186839 (Version 1)
Quarter: 2016Q1

REPORT INFORMATION
  Report Type: Spontaneous
  Country: US (occurrence: None)
  Receive Date: 20160316
  Receipt Date: 20160316
  Transmission Date: 20160526
  Serious: Yes (Other)
  Sender: FDA-Public Use
  Company Number: None

PATIENT
  Age: 14 Year
  Sex: Male
  Weight: 74.84 kg

DRUGS (1)
  1. CEFDINIR 300MG DAVA PHARMACEUTICALS [Suspect]
     Active Substance: CEFDINIR
     Indication: EAR INFECTION
     Dosage: ONE CAPSULE TWICE DAILY TAKEN BY MOUTH
     Route: 048
     Dates: start: 20160305, end: 20160313

REACTIONS (4)
  - Insomnia [None]
  - Rash generalised [None]
  - Urticaria [None]
  - Rash erythematous [None]

NARRATIVE: CASE EVENT DATE: 20160314
